FAERS Safety Report 7947899 (Version 3)
Quarter: 2014Q1

REPORT INFORMATION
  Report Type: Spontaneous
  Country: US (occurrence: None)
  Receive Date: 20110426
  Receipt Date: 20140311
  Transmission Date: 20141002
  Serious: Yes (Other)
  Sender: FDA-Public Use
  Company Number: AUR-APL-2011-01298

PATIENT
  Age: 69 Year
  Sex: Female

DRUGS (10)
  1. GLYBURIDE AND METFORMIN HYDROCHLORIDE [Suspect]
     Indication: PRODUCT USED FOR UNKNOWN INDICATION
  2. AMIODARONE HYDROCHLORIDE [Concomitant]
  3. CLONIDINE TRANSDERMAL SYSTEM [Concomitant]
  4. VALSARTAN [Concomitant]
  5. GABAPENTIN (GABAPENTIN) [Concomitant]
  6. FUROSEMIDE (FUROSEMIDE) [Concomitant]
  7. ATORVASTATIN CALCIUM [Concomitant]
  8. LISINOPRIL (LISINOPRIL) [Concomitant]
  9. AMLODIPINE BESYLATE [Concomitant]
  10. OMEPRAZOLE [Concomitant]

REACTIONS (20)
  - Asthenia [None]
  - Blood glucose decreased [None]
  - Blood pressure increased [None]
  - Respiratory rate increased [None]
  - Malaise [None]
  - Kussmaul respiration [None]
  - Mucous membrane disorder [None]
  - Rhonchi [None]
  - Abdominal tenderness [None]
  - Blood chloride decreased [None]
  - Blood creatinine increased [None]
  - Hyperkalaemia [None]
  - Blood lactic acid increased [None]
  - Haemodialysis [None]
  - Drug level increased [None]
  - Toxicity to various agents [None]
  - Metabolic acidosis [None]
  - Anion gap increased [None]
  - Renal failure chronic [None]
  - Mucosal dryness [None]
